FAERS Safety Report 25159159 (Version 1)
Quarter: 2025Q2

REPORT INFORMATION
  Report Type: Spontaneous
  Country: US (occurrence: US)
  Receive Date: 20250404
  Receipt Date: 20250404
  Transmission Date: 20250716
  Serious: No
  Sender: BAUSCH AND LOMB
  Company Number: US-BAUSCH-BL-2025-004519

PATIENT
  Age: 78 Year
  Sex: Female
  Weight: 47.67 kg

DRUGS (1)
  1. TRULANCE [Suspect]
     Active Substance: PLECANATIDE
     Indication: Constipation
     Route: 048
     Dates: start: 20250321

REACTIONS (5)
  - Eye pain [Unknown]
  - Dehydration [Unknown]
  - Dry eye [Unknown]
  - Nasal dryness [Unknown]
  - Dry skin [Unknown]
